FAERS Safety Report 12913247 (Version 1)
Quarter: 2016Q4

REPORT INFORMATION
  Report Type: Report from Study
  Country: AT (occurrence: AT)
  Receive Date: 20161104
  Receipt Date: 20161104
  Transmission Date: 20170207
  Serious: Yes (Hospitalization)
  Sender: FDA-Public Use
  Company Number: AT-SA-2016SA092246

PATIENT
  Age: 67 Year
  Sex: Female
  Weight: 78 kg

DRUGS (4)
  1. LEVEMIR [Concomitant]
     Active Substance: INSULIN DETEMIR
     Indication: DIABETES MELLITUS
     Route: 058
     Dates: start: 20150202
  2. LYXUMIA [Suspect]
     Active Substance: LIXISENATIDE
     Indication: OBESITY
     Route: 058
     Dates: start: 20150601, end: 20150818
  3. LYXUMIA [Suspect]
     Active Substance: LIXISENATIDE
     Indication: DIABETES MELLITUS
     Route: 058
     Dates: start: 20150601, end: 20150818
  4. SORTIS [Concomitant]
     Active Substance: ATORVASTATIN
     Indication: HYPERLIPIDAEMIA
     Route: 048
     Dates: start: 20150505

REACTIONS (2)
  - Syncope [Recovered/Resolved]
  - Vomiting [Recovered/Resolved]

NARRATIVE: CASE EVENT DATE: 20150804
